FAERS Safety Report 21739394 (Version 2)
Quarter: 2023Q2

REPORT INFORMATION
  Report Type: Spontaneous
  Country: JP (occurrence: JP)
  Receive Date: 20221216
  Receipt Date: 20230609
  Transmission Date: 20230722
  Serious: Yes (Life-Threatening, Hospitalization, Other)
  Sender: FDA-Public Use
  Company Number: None

PATIENT

DRUGS (2)
  1. BENLYSTA [Suspect]
     Active Substance: BELIMUMAB
     Indication: Systemic lupus erythematosus
     Dosage: UNK
     Dates: start: 20210212
  2. ANIFROLUMAB (GENETICAL RECOMBINATION) [Concomitant]
     Indication: Systemic lupus erythematosus
     Dosage: UNK

REACTIONS (6)
  - Suicidal ideation [Recovered/Resolved]
  - Appetite disorder [Recovered/Resolved]
  - Dyssomnia [Recovered/Resolved]
  - Mood altered [Recovered/Resolved]
  - Depression [Unknown]
  - Major depression [Unknown]
